FAERS Safety Report 8140054-2 (Version None)
Quarter: 2012Q1

REPORT INFORMATION
  Report Type: 
  Country: None (occurrence: None)
  Receive Date: 20120215
  Receipt Date: 20120202
  Transmission Date: 20120608
  Serious: Yes (Death)
  Sender: FDA-Public Use
  Company Number: JP-MYLANLABS-2012S1002501

PATIENT
  Age: 64 Year
  Sex: Male

DRUGS (6)
  1. HEPARIN [Concomitant]
     Dosage: CONTINUOUS INFUSION
     Route: 041
  2. ASPIRIN [Suspect]
     Dosage: 100 MG/DAY
     Route: 048
  3. NIFEKALANT [Concomitant]
     Indication: VENTRICULAR FIBRILLATION
     Route: 042
  4. OMEPRAZOLE [Concomitant]
     Route: 065
  5. DUOCID                             /00892601/ [Concomitant]
     Indication: PYREXIA
     Route: 065
  6. TICLOPIDINE HCL [Suspect]
     Dosage: 200 MG/DAY
     Route: 048

REACTIONS (3)
  - HAEMOPTYSIS [None]
  - PULMONARY HAEMORRHAGE [None]
  - PYREXIA [None]
